FAERS Safety Report 7799532-8 (Version None)
Quarter: 2011Q4

REPORT INFORMATION
  Report Type: 
  Country: None (occurrence: None)
  Receive Date: 20111006
  Receipt Date: 20111006
  Transmission Date: 20120403
  Serious: Yes (Other)
  Sender: FDA-Public Use
  Company Number: None

PATIENT
  Age: 71 Year
  Sex: Female
  Weight: 65.77 kg

DRUGS (2)
  1. MACROBID [Concomitant]
     Dosage: 1
     Dates: start: 20100726, end: 20100814
  2. MACROBID [Suspect]
     Indication: UTERINE INFECTION
     Dosage: 1
     Dates: start: 20111003, end: 20111004

REACTIONS (8)
  - BURNING SENSATION [None]
  - SWELLING [None]
  - PRODUCT SUBSTITUTION ISSUE [None]
  - ASTHENIA [None]
  - ABASIA [None]
  - PALPITATIONS [None]
  - URTICARIA [None]
  - SWELLING FACE [None]
